FAERS Safety Report 14906718 (Version 8)
Quarter: 2018Q3

REPORT INFORMATION
  Report Type: Spontaneous
  Country: FR (occurrence: FR)
  Receive Date: 20180517
  Receipt Date: 20180913
  Transmission Date: 20181010
  Serious: Yes (Death, Other)
  Sender: FDA-Public Use
  Company Number: FR-BAXTER-2018BAX014039

PATIENT
  Age: 69 Year
  Sex: Female
  Weight: 35 kg

DRUGS (52)
  1. ENDOXAN 1000 MG, POUDRE POUR SOLUTIONINJECTABLE [Suspect]
     Active Substance: CYCLOPHOSPHAMIDE
     Route: 041
  2. CALCIPARINE [Suspect]
     Active Substance: HEPARIN CALCIUM
     Indication: THROMBOSIS PROPHYLAXIS
     Route: 058
     Dates: start: 20180124, end: 201802
  3. CIPROFLOXACIN, CIPROFLOXACIN HYDROCHLORIDE [Suspect]
     Active Substance: CIPROFLOXACIN\CIPROFLOXACIN HYDROCHLORIDE
     Indication: PRODUCT USED FOR UNKNOWN INDICATION
     Route: 041
     Dates: start: 20180129, end: 201802
  4. LIDOCAINE. [Suspect]
     Active Substance: LIDOCAINE
     Indication: MUCOSAL INFLAMMATION
     Route: 065
  5. FUNGIZONE [Suspect]
     Active Substance: AMPHOTERICIN B
     Indication: MUCOSAL INFLAMMATION
     Route: 002
     Dates: start: 20180125, end: 201802
  6. ZARZIO [Suspect]
     Active Substance: FILGRASTIM
     Indication: PRODUCT USED FOR UNKNOWN INDICATION
     Route: 058
     Dates: start: 20180124, end: 201802
  7. BACTRIM [Suspect]
     Active Substance: SULFAMETHOXAZOLE\TRIMETHOPRIM
     Indication: PRODUCT USED FOR UNKNOWN INDICATION
     Route: 048
     Dates: start: 20180124, end: 20180126
  8. HEXTRIL [Suspect]
     Active Substance: HEXETIDINE
     Indication: MUCOSAL INFLAMMATION
     Dosage: UNK
     Route: 002
     Dates: start: 20180125, end: 201802
  9. BROMAZEPAM [Suspect]
     Active Substance: BROMAZEPAM
     Route: 065
  10. ESCITALOPRAM [Suspect]
     Active Substance: ESCITALOPRAM OXALATE
     Route: 048
  11. MEROPENEM ANHYDROUS [Suspect]
     Active Substance: MEROPENEM ANHYDROUS
     Indication: PRODUCT USED FOR UNKNOWN INDICATION
     Route: 041
     Dates: start: 20180125, end: 201802
  12. ENDOXAN 1000 MG, POUDRE POUR SOLUTIONINJECTABLE [Suspect]
     Active Substance: CYCLOPHOSPHAMIDE
     Indication: CHRONIC MYELOMONOCYTIC LEUKAEMIA
     Route: 041
     Dates: start: 20180116, end: 20180116
  13. CALCIPARINE [Suspect]
     Active Substance: HEPARIN CALCIUM
     Route: 058
  14. METHOTREXATE. [Suspect]
     Active Substance: METHOTREXATE
     Route: 041
     Dates: start: 20180116, end: 20180116
  15. LIDOCAINE. [Suspect]
     Active Substance: LIDOCAINE
     Route: 002
  16. FUROSEMIDE. [Suspect]
     Active Substance: FUROSEMIDE
     Route: 048
  17. PANTOPRAZOLE [Suspect]
     Active Substance: PANTOPRAZOLE
     Indication: PRODUCT USED FOR UNKNOWN INDICATION
     Route: 041
     Dates: start: 20180126, end: 201802
  18. RITUXIMAB (MAMMAL/HAMSTER/CHO CELLS) [Suspect]
     Active Substance: RITUXIMAB
     Indication: CHRONIC MYELOMONOCYTIC LEUKAEMIA
     Route: 041
     Dates: start: 20180116, end: 20180116
  19. DOXORUBICIN HYDROCHLORIDE. [Suspect]
     Active Substance: DOXORUBICIN HYDROCHLORIDE
     Indication: CHRONIC MYELOMONOCYTIC LEUKAEMIA
     Route: 041
     Dates: start: 20180116, end: 20180116
  20. ESCITALOPRAM [Suspect]
     Active Substance: ESCITALOPRAM OXALATE
     Indication: DEPRESSION
     Route: 048
     Dates: start: 20180124, end: 201802
  21. BISOPROLOL (FUMARATE ACID) [Suspect]
     Active Substance: BISOPROLOL FUMARATE
     Indication: PRODUCT USED FOR UNKNOWN INDICATION
     Route: 048
  22. METHOTREXATE. [Suspect]
     Active Substance: METHOTREXATE
     Indication: CHRONIC MYELOMONOCYTIC LEUKAEMIA
     Dosage: UNK
     Route: 041
     Dates: start: 20180117, end: 20180117
  23. VORAXAZE [Suspect]
     Active Substance: GLUCARPIDASE
     Indication: CHRONIC MYELOMONOCYTIC LEUKAEMIA
     Route: 041
     Dates: start: 20180118, end: 20180118
  24. VALACICLOVIR [Suspect]
     Active Substance: VALACYCLOVIR HYDROCHLORIDE
     Route: 065
  25. EXACYL [Suspect]
     Active Substance: TRANEXAMIC ACID
     Indication: PRODUCT USED FOR UNKNOWN INDICATION
     Dosage: UNK
     Route: 041
     Dates: start: 20180129, end: 201802
  26. EXACYL [Suspect]
     Active Substance: TRANEXAMIC ACID
     Route: 041
  27. HEXTRIL [Suspect]
     Active Substance: HEXETIDINE
     Dosage: UNK
     Route: 065
  28. HEXTRIL [Suspect]
     Active Substance: HEXETIDINE
     Route: 002
  29. PREDNISONE. [Suspect]
     Active Substance: PREDNISONE
     Indication: CHRONIC MYELOMONOCYTIC LEUKAEMIA
     Route: 041
     Dates: start: 20180116, end: 20180116
  30. EPREX [Suspect]
     Active Substance: ERYTHROPOIETIN
     Route: 058
  31. ONDANSETRON [Suspect]
     Active Substance: ONDANSETRON
     Route: 048
  32. BACTRIM [Suspect]
     Active Substance: SULFAMETHOXAZOLE\TRIMETHOPRIM
     Route: 048
  33. PANTOPRAZOLE [Suspect]
     Active Substance: PANTOPRAZOLE
     Route: 041
  34. BROMAZEPAM [Suspect]
     Active Substance: BROMAZEPAM
     Indication: PRODUCT USED FOR UNKNOWN INDICATION
     Route: 048
     Dates: start: 20180115, end: 20180129
  35. DOXORUBICIN HYDROCHLORIDE. [Suspect]
     Active Substance: DOXORUBICIN HYDROCHLORIDE
     Route: 041
  36. VALACICLOVIR [Suspect]
     Active Substance: VALACYCLOVIR HYDROCHLORIDE
     Indication: HERPES SIMPLEX
     Route: 048
     Dates: start: 20180124, end: 20180126
  37. PREDNISONE. [Suspect]
     Active Substance: PREDNISONE
     Route: 041
  38. VINCRISTINE SULFATE. [Suspect]
     Active Substance: VINCRISTINE SULFATE
     Indication: CHRONIC MYELOMONOCYTIC LEUKAEMIA
     Route: 041
     Dates: start: 20180116, end: 20180116
  39. VINCRISTINE SULFATE. [Suspect]
     Active Substance: VINCRISTINE SULFATE
     Route: 041
  40. RITUXIMAB (MAMMAL/HAMSTER/CHO CELLS) [Suspect]
     Active Substance: RITUXIMAB
     Route: 041
  41. LIDOCAINE. [Suspect]
     Active Substance: LIDOCAINE
     Indication: PRODUCT USED FOR UNKNOWN INDICATION
     Dosage: UNK
     Route: 002
     Dates: start: 20180125, end: 201802
  42. ZARZIO [Suspect]
     Active Substance: FILGRASTIM
     Route: 058
  43. FUROSEMIDE. [Suspect]
     Active Substance: FUROSEMIDE
     Indication: RENAL FAILURE
     Route: 048
     Dates: start: 20180129, end: 20180131
  44. EXACYL [Suspect]
     Active Substance: TRANEXAMIC ACID
     Dosage: UNK
     Route: 065
  45. EPREX [Suspect]
     Active Substance: ERYTHROPOIETIN
     Indication: PRODUCT USED FOR UNKNOWN INDICATION
     Route: 058
     Dates: start: 20180124, end: 201802
  46. BROMAZEPAM [Suspect]
     Active Substance: BROMAZEPAM
     Route: 048
  47. MEROPENEM ANHYDROUS [Suspect]
     Active Substance: MEROPENEM ANHYDROUS
     Route: 041
  48. CIPROFLOXACIN, CIPROFLOXACIN HYDROCHLORIDE [Suspect]
     Active Substance: CIPROFLOXACIN\CIPROFLOXACIN HYDROCHLORIDE
     Route: 041
  49. FUNGIZONE [Suspect]
     Active Substance: AMPHOTERICIN B
     Route: 002
  50. VORAXAZE [Suspect]
     Active Substance: GLUCARPIDASE
     Route: 041
  51. VALACICLOVIR [Suspect]
     Active Substance: VALACYCLOVIR HYDROCHLORIDE
     Route: 048
  52. ONDANSETRON [Suspect]
     Active Substance: ONDANSETRON
     Indication: NAUSEA
     Route: 048
     Dates: start: 20180124, end: 201802

REACTIONS (3)
  - Toxic epidermal necrolysis [Fatal]
  - Product use in unapproved indication [Unknown]
  - Off label use [Unknown]

NARRATIVE: CASE EVENT DATE: 20180131
